FAERS Safety Report 8172912-7 (Version None)
Quarter: 2012Q1

REPORT INFORMATION
  Report Type: 
  Country: None (occurrence: None)
  Receive Date: 20120229
  Receipt Date: 20120217
  Transmission Date: 20120608
  Serious: Yes (Other)
  Sender: FDA-Public Use
  Company Number: FR-VERTEX PHARMACEUTICALS INC.-000000000000000257

PATIENT
  Age: 5 Decade
  Sex: Male

DRUGS (4)
  1. PEG-INTRON [Concomitant]
     Indication: HEPATITIS C
     Dosage: DOSAGE FORM: UNSPECIFIED
     Dates: start: 20111101
  2. INCIVO (TELAPREVIR) [Suspect]
     Indication: HEPATITIS C
     Dosage: DOSAGE FORM: TABLET, AFTER A BREAK OF 5 DAYS
     Route: 048
     Dates: start: 20111101
  3. RIBAVIRINE [Concomitant]
     Indication: HEPATITIS C
     Dosage: DOSAGE FORM: UNSPECIFIED
     Dates: start: 20111101
  4. INCIVO (TELAPREVIR) [Suspect]
     Dosage: DOSAGE FORM: TABLET
     Route: 048

REACTIONS (6)
  - ANAEMIA [None]
  - TREATMENT NONCOMPLIANCE [None]
  - BAND NEUTROPHIL COUNT DECREASED [None]
  - ASTHENIA [None]
  - THROMBOCYTOPENIA [None]
  - HEPATITIS C RNA INCREASED [None]
